FAERS Safety Report 7504298-2 (Version None)
Quarter: 2011Q2

REPORT INFORMATION
  Report Type: 
  Country: None (occurrence: None)
  Receive Date: 20110525
  Receipt Date: 20110513
  Transmission Date: 20111010
  Serious: Yes (Other)
  Sender: FDA-Public Use
  Company Number: US-BAYER-2011-042884

PATIENT
  Age: 67 Year
  Sex: Female
  Weight: 90.703 kg

DRUGS (1)
  1. ONE-A-DAY CHOLESTEROL PLUS [Suspect]
     Dosage: 1 DF, QD, BOTTLE COUNT 50S
     Route: 048
     Dates: start: 20110401

REACTIONS (11)
  - NEUROMYOPATHY [None]
  - TREMOR [None]
  - PALPITATIONS [None]
  - DYSPNOEA [None]
  - ASTHENIA [None]
  - CHILLS [None]
  - MUSCULAR WEAKNESS [None]
  - GAIT DISTURBANCE [None]
  - VISUAL IMPAIRMENT [None]
  - FATIGUE [None]
  - BALANCE DISORDER [None]
